FAERS Safety Report 4309165-3 (Version None)
Quarter: 2004Q1

REPORT INFORMATION
  Report Type: 
  Country: None (occurrence: None)
  Receive Date: 20040301
  Receipt Date: 20040218
  Transmission Date: 20041129
  Serious: Yes (Other)
  Sender: FDA-Public Use
  Company Number: US-JNJFOC-20031203041

PATIENT
  Age: 74 Year
  Sex: Female
  Weight: 72.5755 kg

DRUGS (7)
  1. REMICADE [Suspect]
     Indication: RHEUMATOID ARTHRITIS
     Dosage: 4 MG/KG, INTRAVENOUS
     Route: 042
     Dates: start: 20030918
  2. REMICADE [Suspect]
     Indication: RHEUMATOID ARTHRITIS
     Dosage: 4 MG/KG, INTRAVENOUS
     Route: 042
     Dates: start: 20031016
  3. METHOTREXATE [Concomitant]
  4. IMURAN [Concomitant]
  5. CELEBREX [Concomitant]
  6. FOSAMAX [Concomitant]
  7. PREDNIOSNE (PREDNISONE) [Concomitant]

REACTIONS (9)
  - DYSPNOEA [None]
  - FLUSHING [None]
  - OBSTRUCTIVE AIRWAYS DISORDER [None]
  - PLEURAL FIBROSIS [None]
  - RESPIRATORY DISTRESS [None]
  - SPINAL OSTEOARTHRITIS [None]
  - TACHYCARDIA [None]
  - VITAL CAPACITY DECREASED [None]
  - WHEEZING [None]
